FAERS Safety Report 12101059 (Version 4)
Quarter: 2016Q1

REPORT INFORMATION
  Report Type: Spontaneous
  Country: US (occurrence: US)
  Receive Date: 20160222
  Receipt Date: 20160311
  Transmission Date: 20160526
  Serious: No
  Sender: FDA-Public Use
  Company Number: US-PFIZER INC-2016092072

PATIENT
  Age: 43 Year
  Sex: Female

DRUGS (2)
  1. XANAX XR [Suspect]
     Active Substance: ALPRAZOLAM
     Dosage: 0.25 MG, UNK
  2. XANAX [Suspect]
     Active Substance: ALPRAZOLAM
     Indication: VERTIGO
     Dosage: UNK
     Dates: start: 200503

REACTIONS (5)
  - Intentional product misuse [Unknown]
  - Impaired driving ability [Not Recovered/Not Resolved]
  - Hypersensitivity [Unknown]
  - Somnolence [Unknown]
  - Product use issue [Unknown]

NARRATIVE: CASE EVENT DATE: 200503
